FAERS Safety Report 20999091 (Version 7)
Quarter: 2022Q4

REPORT INFORMATION
  Report Type: Spontaneous
  Country: US (occurrence: US)
  Receive Date: 20220623
  Receipt Date: 20221218
  Transmission Date: 20230113
  Serious: Yes (Other)
  Sender: FDA-Public Use
  Company Number: US-BRISTOL-MYERS SQUIBB COMPANY-2022-062994

PATIENT
  Age: 70 Year
  Sex: Female

DRUGS (11)
  1. REVLIMID [Suspect]
     Active Substance: LENALIDOMIDE
     Indication: Plasma cell myeloma
     Route: 048
     Dates: start: 20220420
  2. REVLIMID [Suspect]
     Active Substance: LENALIDOMIDE
     Indication: B-cell lymphoma
  3. REVLIMID [Suspect]
     Active Substance: LENALIDOMIDE
     Dosage: DAILY FOR 21 DAYS THEN 7 DAYS OFF.
     Route: 048
     Dates: start: 20220420
  4. REVLIMID [Suspect]
     Active Substance: LENALIDOMIDE
     Dosage: FREQUENCY : DAILY FOR 21 DAYS THEN 7 DAYS OFF.
     Route: 048
     Dates: start: 20220628, end: 20220926
  5. REVLIMID [Suspect]
     Active Substance: LENALIDOMIDE
     Dosage: FREQUENCY: 15MG ONE CAPSULE PER ORAL QD FOR 21 DAYS, THEN 7 DAYS OFF
     Route: 048
     Dates: start: 20210420
  6. REVLIMID [Suspect]
     Active Substance: LENALIDOMIDE
     Dosage: REVLIMID 10 MG CAPSULE 1 CAPSULE QD FOR 21 DAYS THEN OFF FOR 7 DAYS.
     Route: 048
     Dates: start: 20220420
  7. ACYCLOVIR [Concomitant]
     Active Substance: ACYCLOVIR
     Indication: Product used for unknown indication
  8. ASPIRIN [Concomitant]
     Active Substance: ASPIRIN
     Indication: Product used for unknown indication
  9. BACTRIM DS [Concomitant]
     Active Substance: SULFAMETHOXAZOLE\TRIMETHOPRIM
     Indication: Product used for unknown indication
     Dosage: 800-160 MG
  10. VITAMINS NOS [Concomitant]
     Active Substance: VITAMINS
     Indication: Product used for unknown indication
  11. ONDANSETRON [Concomitant]
     Active Substance: ONDANSETRON
     Indication: Product used for unknown indication

REACTIONS (4)
  - Neutropenia [Unknown]
  - Anaemia [Unknown]
  - White blood cell count decreased [Unknown]
  - Rash [Unknown]

NARRATIVE: CASE EVENT DATE: 20220620
